FAERS Safety Report 8780283 (Version 1)
Quarter: 2012Q4

REPORT INFORMATION
  Report Type: Spontaneous
  Country: US (occurrence: None)
  Receive Date: 20120905
  Receipt Date: 20120905
  Transmission Date: 20130627
  Serious: Yes (Hospitalization, Other)
  Sender: FDA-Public Use
  Company Number: None

PATIENT
  Sex: Female
  Weight: 54.43 kg

DRUGS (1)
  1. PROLIA [Suspect]
     Indication: OSTEOPOROSIS
     Route: 030
     Dates: start: 20120228

REACTIONS (9)
  - Myalgia [None]
  - Arthralgia [None]
  - Constipation [None]
  - Decreased appetite [None]
  - Asthenia [None]
  - Diverticulitis [None]
  - Urinary tract infection [None]
  - Faecaloma [None]
  - Skin disorder [None]
